FAERS Safety Report 12557482 (Version 1)
Quarter: 2016Q3

REPORT INFORMATION
  Report Type: Spontaneous
  Country: US (occurrence: US)
  Receive Date: 20160714
  Receipt Date: 20160714
  Transmission Date: 20161109
  Serious: No
  Sender: FDA-Public Use
  Company Number: US-PFIZER INC-2016338770

PATIENT
  Sex: Female

DRUGS (1)
  1. LYRICA [Suspect]
     Active Substance: PREGABALIN
     Indication: FIBROMYALGIA
     Dosage: UNK

REACTIONS (12)
  - Agitation [Unknown]
  - Swelling [Unknown]
  - Lip swelling [Unknown]
  - Cardiac disorder [Unknown]
  - Hypersensitivity [Unknown]
  - Mouth swelling [Unknown]
  - Lung disorder [Unknown]
  - Pharyngeal oedema [Unknown]
  - Swelling face [Unknown]
  - Urticaria [Unknown]
  - Swollen tongue [Unknown]
  - Genital swelling [Unknown]
